FAERS Safety Report 25676958 (Version 1)
Quarter: 2025Q3

REPORT INFORMATION
  Report Type: Spontaneous
  Country: US (occurrence: US)
  Receive Date: 20250813
  Receipt Date: 20250813
  Transmission Date: 20251021
  Serious: Yes (Other)
  Sender: B. BRAUN MEDICAL INC.
  Company Number: US-B. Braun Medical Inc.-US-BBM-202503002

PATIENT
  Age: 73 Year
  Sex: Female

DRUGS (1)
  1. CEFOXITIN [Suspect]
     Active Substance: CEFOXITIN SODIUM
     Indication: Mycobacterium abscessus infection

REACTIONS (1)
  - Tubulointerstitial nephritis [Unknown]
